FAERS Safety Report 15819462 (Version 2)
Quarter: 2019Q2

REPORT INFORMATION
  Report Type: Spontaneous
  Country: CN (occurrence: CN)
  Receive Date: 20190114
  Receipt Date: 20190518
  Transmission Date: 20190711
  Serious: Yes (Other)
  Sender: FDA-Public Use
  Company Number: CN-ROCHE-2238926

PATIENT
  Age: 63 Year
  Sex: Female

DRUGS (2)
  1. XELODA [Suspect]
     Active Substance: CAPECITABINE
     Indication: METASTASES TO LUNG
     Dosage: PULMONARY METASTASIS, MEDIASTINAL METASTASIS OF BREAST CANCER, STAGE IV, T0N0M1
     Route: 048
     Dates: start: 201406
  2. HERCEPTIN [Suspect]
     Active Substance: TRASTUZUMAB
     Indication: METASTASES TO LUNG
     Dosage: PULMONARY METASTASIS, MEDIASTINAL METASTASIS OF BREAST CANCER, STAGE IV, T0N0M1
     Route: 065
     Dates: start: 20140211

REACTIONS (5)
  - Angiopathy [Unknown]
  - Drug-induced liver injury [Unknown]
  - Bone marrow failure [Unknown]
  - Swelling face [Unknown]
  - Swelling [Unknown]

NARRATIVE: CASE EVENT DATE: 201501
